FAERS Safety Report 5782194-9 (Version None)
Quarter: 2008Q2

REPORT INFORMATION
  Report Type: 
  Country: None (occurrence: None)
  Receive Date: 20080623
  Receipt Date: 20080610
  Transmission Date: 20081010
  Serious: Yes (Hospitalization)
  Sender: FDA-Public Use
  Company Number: FR-ROCHE-566428

PATIENT
  Sex: Female
  Weight: 68.5 kg

DRUGS (6)
  1. BONIVA [Suspect]
     Indication: OSTEOPOROSIS
     Route: 048
     Dates: start: 20070501, end: 20080201
  2. DAFALGAN [Concomitant]
     Dosage: DRUG: DAFALGAN 1000
     Route: 048
  3. ATORVASTATIN CALCIUM [Concomitant]
     Dosage: DRUG: TAHOR 10
     Route: 048
  4. ART 50 [Concomitant]
     Route: 048
  5. CHONDROSULF [Concomitant]
     Route: 048
  6. RYTHMOL [Concomitant]
     Indication: ARRHYTHMIA
     Route: 048

REACTIONS (2)
  - BONE DISORDER [None]
  - IMPLANT SITE REACTION [None]
